FAERS Safety Report 24377170 (Version 2)
Quarter: 2024Q4

REPORT INFORMATION
  Report Type: Report from Study
  Country: US (occurrence: US)
  Receive Date: 20240930
  Receipt Date: 20241127
  Transmission Date: 20250114
  Serious: Yes (Hospitalization, Other)
  Sender: ABBVIE
  Company Number: US-ABBVIE-5939570

PATIENT
  Age: 72 Year
  Sex: Female

DRUGS (1)
  1. HUMIRA [Suspect]
     Active Substance: ADALIMUMAB
     Indication: Rheumatoid arthritis
     Route: 058
     Dates: start: 20100716

REACTIONS (5)
  - Uterine cancer [Recovering/Resolving]
  - Upper respiratory tract infection [Recovering/Resolving]
  - Vomiting [Recovering/Resolving]
  - Alopecia [Unknown]
  - Anaemia [Unknown]

NARRATIVE: CASE EVENT DATE: 20240801
